FAERS Safety Report 20623887 (Version 1)
Quarter: 2022Q1

REPORT INFORMATION
  Report Type: Spontaneous
  Country: US (occurrence: US)
  Receive Date: 20220322
  Receipt Date: 20220322
  Transmission Date: 20220424
  Serious: No
  Sender: FDA-Public Use
  Company Number: US-SEATTLE GENETICS-2022SGN02887

PATIENT
  Sex: Female

DRUGS (1)
  1. TIVDAK [Suspect]
     Active Substance: TISOTUMAB VEDOTIN-TFTV
     Indication: Metastatic neoplasm
     Dosage: UNK
     Route: 065
     Dates: start: 202202

REACTIONS (2)
  - Pruritus [Unknown]
  - Functional gastrointestinal disorder [Unknown]
